FAERS Safety Report 7389775-X (Version None)
Quarter: 2011Q2

REPORT INFORMATION
  Report Type: 
  Country: None (occurrence: None)
  Receive Date: 20110401
  Receipt Date: 20110312
  Transmission Date: 20111010
  Serious: No
  Sender: FDA-Public Use
  Company Number: US-B.I. PHARMACEUTICALS,INC./RIDGEFIELD-2011-BP-07948BP

PATIENT
  Sex: Male

DRUGS (11)
  1. PRADAXA [Suspect]
     Indication: PULMONARY EMBOLISM
     Dosage: 300 MG
     Route: 048
     Dates: start: 20110202
  2. DONNATAL [Concomitant]
     Indication: IRRITABLE BOWEL SYNDROME
  3. XANAX [Concomitant]
     Indication: ANXIETY
     Dosage: 3 MG
  4. ACIPHEX [Concomitant]
     Indication: GASTROOESOPHAGEAL REFLUX DISEASE
  5. ASPIRIN [Concomitant]
     Dosage: 81 MG
  6. ZOCOR [Concomitant]
     Indication: BLOOD CHOLESTEROL INCREASED
     Dates: end: 20110308
  7. PEPCID AC [Concomitant]
     Indication: GASTROOESOPHAGEAL REFLUX DISEASE
  8. TOPROL-XL [Concomitant]
     Indication: HYPERTENSION
     Dates: end: 20110308
  9. SYMBICORT [Concomitant]
     Indication: ASTHMA
     Dates: end: 20110305
  10. IMIPRAMINE [Concomitant]
     Dates: end: 20110206
  11. AMBIEN [Concomitant]
     Indication: INSOMNIA

REACTIONS (2)
  - DIZZINESS [None]
  - VISION BLURRED [None]
